FAERS Safety Report 18749046 (Version 1)
Quarter: 2021Q1

REPORT INFORMATION
  Report Type: Spontaneous
  Country: US (occurrence: US)
  Receive Date: 20210116
  Receipt Date: 20210116
  Transmission Date: 20210419
  Serious: No
  Sender: FDA-Public Use
  Company Number: US-ADVANZ PHARMA-202101000039

PATIENT

DRUGS (4)
  1. PFIZER?BIONTECH COVID?19 VACCINE [Concomitant]
     Active Substance: TOZINAMERAN
     Indication: IMMUNISATION
     Dosage: UNK, UNKNOWN DOSAGE INJECTION TO LEFT SHOULDER AROUND 3:00?4:00PM
     Dates: start: 20201229
  2. WARFARIN [Concomitant]
     Active Substance: WARFARIN
     Indication: ANTICOAGULANT THERAPY
     Dosage: 10 MG, QD
     Route: 048
  3. ASPIRIN. [Concomitant]
     Active Substance: ASPIRIN
     Indication: ANTICOAGULANT THERAPY
     Dosage: 81 MG, QD
     Route: 048
  4. HYDROXYCHLOROQUINE [Suspect]
     Active Substance: HYDROXYCHLOROQUINE
     Indication: ANTICOAGULANT THERAPY
     Dosage: 400 MG, QD (ABOUT 15?20 YEARS AGO)
     Route: 048

REACTIONS (1)
  - Product use in unapproved indication [Unknown]
